FAERS Safety Report 6087851-5 (Version None)
Quarter: 2009Q1

REPORT INFORMATION
  Report Type: 
  Country: None (occurrence: None)
  Receive Date: 20090223
  Receipt Date: 20090220
  Transmission Date: 20090719
  Serious: Yes (Life-Threatening)
  Sender: FDA-Public Use
  Company Number: DE-B.I. PHARMACEUTICALS,INC./RIDGEFIELD-2009-DE-01726DE

PATIENT
  Age: 76 Year
  Sex: Male

DRUGS (2)
  1. AGGRENOX [Suspect]
     Dosage: 8000MG
     Route: 048
  2. VENLAFAXINE HCL [Suspect]
     Route: 048

REACTIONS (4)
  - DRUG ABUSE [None]
  - LOSS OF CONSCIOUSNESS [None]
  - OVERDOSE [None]
  - SUICIDE ATTEMPT [None]
